FAERS Safety Report 5390730-X (Version None)
Quarter: 2007Q3

REPORT INFORMATION
  Report Type: 
  Country: None (occurrence: None)
  Receive Date: 20070706
  Receipt Date: 20051220
  Transmission Date: 20080115
  Serious: Yes (Death, Hospitalization)
  Sender: FDA-Public Use
  Company Number: MPS1-10463

PATIENT
  Age: 5 Year
  Sex: Female

DRUGS (1)
  1. ALDURAZYME [Suspect]
     Indication: MUCOPOLYSACCHARIDOSIS I
     Dosage: 0.6 MG/KG QWK IV
     Route: 042
     Dates: start: 20030708, end: 20051219

REACTIONS (6)
  - DYSPNOEA [None]
  - PYREXIA [None]
  - RESPIRATORY FAILURE [None]
  - SPEECH DISORDER [None]
  - VIRAL INFECTION [None]
  - VOMITING [None]
